FAERS Safety Report 18167915 (Version 2)
Quarter: 2020Q4

REPORT INFORMATION
  Report Type: Spontaneous
  Country: US (occurrence: US)
  Receive Date: 20200818
  Receipt Date: 20201012
  Transmission Date: 20210113
  Serious: No
  Sender: FDA-Public Use
  Company Number: US-OTSUKA-2020_014328

PATIENT
  Age: 25 Year
  Sex: Female

DRUGS (1)
  1. ABILIFY MAINTENA [Suspect]
     Active Substance: ARIPIPRAZOLE
     Indication: PSYCHOTIC DISORDER
     Dosage: 300 MG, UNK
     Route: 065

REACTIONS (3)
  - Syringe issue [Unknown]
  - Underdose [Unknown]
  - Product use in unapproved indication [Unknown]
